FAERS Safety Report 24052856 (Version 1)
Quarter: 2024Q3

REPORT INFORMATION
  Report Type: Spontaneous
  Country: US (occurrence: US)
  Receive Date: 20240705
  Receipt Date: 20240705
  Transmission Date: 20241017
  Serious: No
  Sender: BIOVITRUM
  Company Number: US-BIOVITRUM-2024-US-009473

PATIENT
  Age: 71 Year
  Sex: Male

DRUGS (1)
  1. VONJO [Suspect]
     Active Substance: PACRITINIB
     Indication: Myeloproliferative neoplasm
     Dosage: DAILY
     Route: 048
     Dates: start: 20220622

REACTIONS (2)
  - Night sweats [Unknown]
  - Intentional product misuse [Recovered/Resolved]

NARRATIVE: CASE EVENT DATE: 20220622
